FAERS Safety Report 4695832-9 (Version None)
Quarter: 2005Q2

REPORT INFORMATION
  Report Type: 
  Country: None (occurrence: None)
  Receive Date: 20050608
  Receipt Date: 20050110
  Transmission Date: 20051028
  Serious: Yes (Other)
  Sender: FDA-Public Use
  Company Number: 396256

PATIENT

DRUGS (6)
  1. ISOTRETINOIN [Suspect]
     Indication: ACNE
     Dosage: ORAL
     Route: 048
  2. VIREAD [Concomitant]
  3. VIDEX [Concomitant]
  4. NORVIR [Concomitant]
  5. ACCUPRIL (CHINAPRYL) [Concomitant]
  6. REYATAZ [Concomitant]

REACTIONS (1)
  - ABORTION INDUCED [None]
